FAERS Safety Report 10265426 (Version 1)
Quarter: 2014Q2

REPORT INFORMATION
  Report Type: Spontaneous
  Country: US (occurrence: US)
  Receive Date: 20140627
  Receipt Date: 20140627
  Transmission Date: 20141212
  Serious: No
  Sender: FDA-Public Use
  Company Number: US-009507513-1405USA008383

PATIENT
  Age: 5 Year
  Sex: 0

DRUGS (6)
  1. CLARITIN CHEWABLE TABLETS [Suspect]
     Indication: HYPERSENSITIVITY
     Dosage: UNK, QD
     Route: 048
  2. CLARITIN CHEWABLE TABLETS [Suspect]
     Indication: SNEEZING
  3. CLARITIN CHEWABLE TABLETS [Suspect]
     Indication: EYE PRURITUS
  4. CLARITIN CHEWABLE TABLETS [Suspect]
     Indication: RHINORRHOEA
  5. CLARITIN CHEWABLE TABLETS [Suspect]
     Indication: NASAL CONGESTION
  6. CLARITIN CHEWABLE TABLETS [Suspect]
     Indication: EYE DISCHARGE

REACTIONS (3)
  - Therapeutic response changed [Unknown]
  - Drug effect delayed [Unknown]
  - Drug effect decreased [Unknown]
